FAERS Safety Report 5360484-1 (Version None)
Quarter: 2007Q2

REPORT INFORMATION
  Report Type: 
  Country: None (occurrence: None)
  Receive Date: 20070618
  Receipt Date: 20070608
  Transmission Date: 20071010
  Serious: Yes (Death)
  Sender: FDA-Public Use
  Company Number: B0437581A

PATIENT
  Age: 76 Year
  Sex: Female
  Weight: 50 kg

DRUGS (8)
  1. ARIXTRA [Suspect]
     Dosage: 5MG PER DAY
     Route: 058
     Dates: start: 20060818, end: 20060904
  2. CORGARD [Concomitant]
  3. ISKEDYL FORT [Concomitant]
  4. ADANCOR [Concomitant]
  5. HYPERIUM [Concomitant]
  6. DISCOTRINE [Concomitant]
  7. OGAST [Concomitant]
  8. ASPIRIN [Concomitant]

REACTIONS (5)
  - ISCHAEMIC STROKE [None]
  - PROTHROMBIN LEVEL DECREASED [None]
  - THROMBOCYTOPENIA [None]
  - THROMBOSIS [None]
  - VISUAL DISTURBANCE [None]
